FAERS Safety Report 7239197-7 (Version None)
Quarter: 2011Q1

REPORT INFORMATION
  Report Type: 
  Country: None (occurrence: None)
  Receive Date: 20110121
  Receipt Date: 20101122
  Transmission Date: 20110831
  Serious: Yes (Other)
  Sender: FDA-Public Use
  Company Number: PHHY2010CA50285

PATIENT
  Age: 65 Year
  Sex: Male
  Weight: 97.73 kg

DRUGS (12)
  1. ADALAT CC [Suspect]
     Dosage: 20 MG, UNK
     Route: 048
  2. SEPTRA [Concomitant]
     Route: 042
  3. DIURETICS [Concomitant]
  4. CIPRO [Concomitant]
  5. AVELOX [Concomitant]
  6. ADALAT CC [Suspect]
     Indication: HYPERTENSION
     Dosage: 30 MG, ONE WEEK
     Route: 048
     Dates: start: 20070906
  7. ADALAT CC [Suspect]
     Dosage: 90 MG, UNK
     Route: 048
  8. TEQUIN [Concomitant]
  9. LEVAQUIN [Concomitant]
  10. AMOXICILLIN SODIUM W/CLAVULANATE POTASSIUM [Concomitant]
  11. DIOVAN [Suspect]
     Indication: HYPERTENSION
  12. ADALAT CC [Suspect]
     Dosage: UNK
     Route: 048
     Dates: start: 20091101

REACTIONS (7)
  - CONDITION AGGRAVATED [None]
  - INSOMNIA [None]
  - HYPERTENSION [None]
  - TINNITUS [None]
  - ABDOMINAL DISTENSION [None]
  - NOCTURIA [None]
  - PROSTATITIS [None]
